FAERS Safety Report 12064019 (Version 2)
Quarter: 2016Q1

REPORT INFORMATION
  Report Type: Report from Study
  Country: SE (occurrence: SE)
  Receive Date: 20160210
  Receipt Date: 20160217
  Transmission Date: 20160526
  Serious: Yes (Hospitalization, Disabling)
  Sender: FDA-Public Use
  Company Number: SE-ABBVIE-16P-150-1554854-00

PATIENT
  Age: 68 Year
  Sex: Male

DRUGS (8)
  1. MADOPARK QUICK [Concomitant]
     Active Substance: BENSERAZIDE HYDROCHLORIDE\LEVODOPA
     Indication: PARKINSON^S DISEASE
     Dosage: 100 MG/25 MG
     Route: 048
  2. DUODOPA [Suspect]
     Active Substance: CARBIDOPA\LEVODOPA
     Dosage: CD DAY FROM 5AM: 5.5 ML/HR; CD NIGHT FROM 9PM 3.8ML/HR
     Route: 050
     Dates: start: 20160204
  3. IMOVANE [Concomitant]
     Active Substance: ZOPICLONE
     Indication: INSOMNIA
     Dosage: IN THE EVENING
     Route: 048
  4. SOBRIL [Concomitant]
     Active Substance: OXAZEPAM
     Indication: INSOMNIA
     Route: 048
  5. MADOPARK [Concomitant]
     Indication: PARKINSON^S DISEASE
     Dosage: 100 MG/25 MG
     Route: 048
  6. DUODOPA [Suspect]
     Active Substance: CARBIDOPA\LEVODOPA
     Indication: PARKINSON^S DISEASE
     Route: 050
     Dates: start: 20150309
  7. DUODOPA [Suspect]
     Active Substance: CARBIDOPA\LEVODOPA
     Dosage: CD DAY FROM 5AM: 6.0 ML/HR; CD NIGHT FROM 9PM 4.1ML/HR
     Route: 050
     Dates: start: 20160204
  8. LITHIUM. [Concomitant]
     Active Substance: LITHIUM
     Indication: BIPOLAR DISORDER
     Dosage: 2 TABLETS IN THE MORNING
     Route: 048

REACTIONS (12)
  - Pain in extremity [Not Recovered/Not Resolved]
  - Memory impairment [Unknown]
  - Skin discolouration [Recovered/Resolved]
  - Colour blindness [Not Recovered/Not Resolved]
  - Diplopia [Not Recovered/Not Resolved]
  - Complication associated with device [Unknown]
  - Visual impairment [Not Recovered/Not Resolved]
  - Vision blurred [Not Recovered/Not Resolved]
  - Stoma site infection [Recovered/Resolved]
  - Fall [Unknown]
  - Respiratory disorder [Not Recovered/Not Resolved]
  - Stoma site erythema [Not Recovered/Not Resolved]

NARRATIVE: CASE EVENT DATE: 2015
